FAERS Safety Report 6733314-0 (Version None)
Quarter: 2010Q2

REPORT INFORMATION
  Report Type: 
  Country: None (occurrence: None)
  Receive Date: 20100520
  Receipt Date: 20100510
  Transmission Date: 20101027
  Serious: Yes (Other)
  Sender: FDA-Public Use
  Company Number: PL-PFIZER INC-2010058419

PATIENT
  Sex: Female

DRUGS (1)
  1. DOSTINEX [Suspect]

REACTIONS (1)
  - RAYNAUD'S PHENOMENON [None]
